FAERS Safety Report 20679184 (Version 1)
Quarter: 2022Q2

REPORT INFORMATION
  Report Type: Spontaneous
  Country: IE (occurrence: IE)
  Receive Date: 20220406
  Receipt Date: 20220406
  Transmission Date: 20220720
  Serious: Yes (Other)
  Sender: FDA-Public Use
  Company Number: IE-TEVA-2022-IE-2023533

PATIENT

DRUGS (1)
  1. DOXORUBICIN [Suspect]
     Active Substance: DOXORUBICIN
     Indication: Anaplastic thyroid cancer
     Dosage: 7 CYCLES
     Route: 042

REACTIONS (4)
  - Anaemia [Unknown]
  - Dysphagia [Unknown]
  - Dermatitis [Unknown]
  - Fatigue [Unknown]
